FAERS Safety Report 14891788 (Version 1)
Quarter: 2018Q2

REPORT INFORMATION
  Report Type: Spontaneous
  Country: US (occurrence: US)
  Receive Date: 20180514
  Receipt Date: 20180514
  Transmission Date: 20180711
  Serious: No
  Sender: FDA-Public Use
  Company Number: US-LUNDBECK-DKLU2048340

PATIENT
  Age: 77 Year
  Sex: Female

DRUGS (3)
  1. NORTHERA [Suspect]
     Active Substance: DROXIDOPA
     Indication: AUTONOMIC NEUROPATHY
     Dosage: TITRATIOLN SCHEDULE B
     Route: 048
     Dates: start: 20180502
  2. NORTHERA [Suspect]
     Active Substance: DROXIDOPA
     Indication: ORTHOSTATIC HYPOTENSION
  3. NORTHERA [Suspect]
     Active Substance: DROXIDOPA
     Indication: DIZZINESS

REACTIONS (8)
  - Fatigue [Unknown]
  - Chest discomfort [Unknown]
  - Dyspnoea [Unknown]
  - Nervousness [Unknown]
  - Blood pressure decreased [Unknown]
  - Muscular weakness [Unknown]
  - Drug ineffective [Unknown]
  - Headache [Unknown]

NARRATIVE: CASE EVENT DATE: 20180502
